FAERS Safety Report 14894058 (Version 2)
Quarter: 2018Q2

REPORT INFORMATION
  Report Type: Spontaneous
  Country: US (occurrence: US)
  Receive Date: 20180514
  Receipt Date: 20180522
  Transmission Date: 20180711
  Serious: Yes (Other)
  Sender: FDA-Public Use
  Company Number: US-009507513-1805USA003043

PATIENT
  Sex: Male

DRUGS (1)
  1. BRIDION [Suspect]
     Active Substance: SUGAMMADEX
     Dosage: UNK, ONCE
     Dates: start: 2018, end: 2018

REACTIONS (1)
  - Atrioventricular block complete [Unknown]

NARRATIVE: CASE EVENT DATE: 2018
